FAERS Safety Report 5765400-6 (Version None)
Quarter: 2008Q2

REPORT INFORMATION
  Report Type: 
  Country: None (occurrence: None)
  Receive Date: 20080611
  Receipt Date: 20080606
  Transmission Date: 20081010
  Serious: Yes (Hospitalization)
  Sender: FDA-Public Use
  Company Number: IE-WYE-G01572808

PATIENT
  Sex: Female

DRUGS (6)
  1. EFFEXOR [Suspect]
     Indication: DEPRESSION
     Route: 048
     Dates: end: 20080501
  2. EFFEXOR [Suspect]
     Route: 048
     Dates: start: 20080101
  3. MIRTAZAPINE [Suspect]
     Dosage: UNKNOWN
     Dates: end: 20080501
  4. MIRTAZAPINE [Suspect]
     Dosage: UNKNOWN
     Dates: start: 20080101
  5. SEROQUEL [Suspect]
     Dosage: UNKNOWN
     Dates: end: 20080501
  6. SEROQUEL [Suspect]
     Dosage: UNKNOWN
     Dates: start: 20080101

REACTIONS (3)
  - CHEST DISCOMFORT [None]
  - DIZZINESS [None]
  - DRUG WITHDRAWAL SYNDROME [None]
